FAERS Safety Report 11242356 (Version 1)
Quarter: 2015Q3

REPORT INFORMATION
  Report Type: Spontaneous
  Country: US (occurrence: US)
  Receive Date: 20150707
  Receipt Date: 20150707
  Transmission Date: 20151125
  Serious: No
  Sender: FDA-Public Use
  Company Number: US-009507513-1506USA012372

PATIENT
  Age: 20 Year
  Sex: Female
  Weight: 77.55 kg

DRUGS (1)
  1. NEXPLANON [Suspect]
     Active Substance: ETONOGESTREL
     Indication: CONTRACEPTION
     Dosage: DOSE/FREQUENCY: 1 ROD/ THREE YEARS
     Route: 059
     Dates: end: 20150605

REACTIONS (4)
  - Medical device complication [Recovered/Resolved]
  - Road traffic accident [Unknown]
  - Haemorrhage [Unknown]
  - Device kink [Recovered/Resolved]

NARRATIVE: CASE EVENT DATE: 20150405
